FAERS Safety Report 19073378 (Version 4)
Quarter: 2022Q2

REPORT INFORMATION
  Report Type: Spontaneous
  Country: US (occurrence: US)
  Receive Date: 20210330
  Receipt Date: 20220616
  Transmission Date: 20220721
  Serious: Yes (Other)
  Sender: FDA-Public Use
  Company Number: US-PFIZER INC-2021315038

PATIENT
  Age: 81 Year
  Sex: Female

DRUGS (1)
  1. XELJANZ XR [Suspect]
     Active Substance: TOFACITINIB CITRATE
     Dosage: 11 MG, 1X/DAY (1 TABLET BY ORAL ROUTE EVERY DAY)
     Route: 048

REACTIONS (4)
  - Rheumatoid arthritis [Unknown]
  - Dysgraphia [Unknown]
  - Nasopharyngitis [Unknown]
  - COVID-19 [Unknown]
